FAERS Safety Report 10196468 (Version 1)
Quarter: 2014Q2

REPORT INFORMATION
  Report Type: Spontaneous
  Country: US (occurrence: None)
  Receive Date: 20140523
  Receipt Date: 20140523
  Transmission Date: 20141212
  Serious: Yes (Death)
  Sender: FDA-Public Use
  Company Number: None

PATIENT
  Age: 29 Year
  Sex: Male

DRUGS (5)
  1. AZATHIOPRINE [Suspect]
     Indication: COLITIS ULCERATIVE
     Dates: start: 20121019, end: 20121102
  2. INFLIXIMAB (REMICADE) [Suspect]
     Indication: COLITIS ULCERATIVE
     Dosage: 2 DOSES OVER 14 DAYS
     Dates: start: 20121019, end: 20121102
  3. LIALDA [Concomitant]
  4. PREDNISONE [Concomitant]
  5. PARACETAMOL [Suspect]

REACTIONS (2)
  - Drug-induced liver injury [None]
  - Pancreatitis acute [None]
